FAERS Safety Report 12630790 (Version 3)
Quarter: 2016Q4

REPORT INFORMATION
  Report Type: Spontaneous
  Country: US (occurrence: US)
  Receive Date: 20160808
  Receipt Date: 20161003
  Transmission Date: 20170207
  Serious: No
  Sender: FDA-Public Use
  Company Number: US-PFIZER INC-2016359475

PATIENT
  Age: 82 Year
  Sex: Male

DRUGS (1)
  1. GABAPENTIN. [Suspect]
     Active Substance: GABAPENTIN
     Dosage: 250 MG, 3X/DAY
     Route: 048
     Dates: start: 20160218

REACTIONS (2)
  - Post herpetic neuralgia [Unknown]
  - Drug intolerance [Unknown]
